FAERS Safety Report 4751596-1 (Version None)
Quarter: 2005Q3

REPORT INFORMATION
  Report Type: 
  Country: None (occurrence: None)
  Receive Date: 20050824
  Receipt Date: 20040715
  Transmission Date: 20060218
  Serious: Yes (Hospitalization)
  Sender: FDA-Public Use
  Company Number: PHHO2004DE10019

PATIENT
  Age: 36 Year
  Sex: Male
  Weight: 83 kg

DRUGS (4)
  1. FTY720 VS MYCOPHENOLATE MOFETIL [Suspect]
     Indication: RENAL TRANSPLANT
     Dosage: CODE NOT BROKEN
     Route: 048
     Dates: start: 20040615
  2. URBASON [Concomitant]
     Indication: RENAL TRANSPLANT
     Dosage: 24 MG, QD
     Route: 048
     Dates: start: 20040615
  3. NEORAL [Suspect]
     Indication: RENAL TRANSPLANT
     Dosage: 650 MG, QD
     Route: 048
     Dates: start: 20040615
  4. NEORAL [Suspect]
     Dosage: REDUCTION

REACTIONS (4)
  - BLOOD CREATININE INCREASED [None]
  - ESCHERICHIA URINARY TRACT INFECTION [None]
  - NEPHROPATHY TOXIC [None]
  - URINARY TRACT OBSTRUCTION [None]
